FAERS Safety Report 8839645 (Version 1)
Quarter: 2012Q4

REPORT INFORMATION
  Report Type: 
  Country: US (occurrence: US)
  Receive Date: 20121015
  Receipt Date: 20121015
  Transmission Date: 20130627
  Serious: Yes (Other)
  Sender: FDA-Public Use
  Company Number: US-MYLANLABS-2012S1020668

PATIENT
  Age: 15 Year
  Sex: Female

DRUGS (1)
  1. MERCAPTOPURINE [Suspect]
     Indication: CROHN^S DISEASE
     Dosage: 75mg
     Route: 048

REACTIONS (2)
  - Histiocytosis haematophagic [Recovered/Resolved]
  - Diffuse large B-cell lymphoma [Recovering/Resolving]
